FAERS Safety Report 15035975 (Version 1)
Quarter: 2018Q2

REPORT INFORMATION
  Report Type: Spontaneous
  Country: AR (occurrence: AR)
  Receive Date: 20180620
  Receipt Date: 20180620
  Transmission Date: 20180711
  Serious: Yes (Other)
  Sender: FDA-Public Use
  Company Number: PHHY2018AR022270

PATIENT
  Age: 70 Year
  Sex: Male
  Weight: 112.9 kg

DRUGS (2)
  1. ATLANSIL [Suspect]
     Active Substance: AMIODARONE
     Indication: ARRHYTHMIA
     Dosage: 200 MG, QD
     Route: 048
     Dates: start: 20170522
  2. EXFORGE [Suspect]
     Active Substance: AMLODIPINE BESYLATE\VALSARTAN
     Indication: HYPERTENSION
     Dosage: 1 DF, QD
     Route: 048
     Dates: start: 201608

REACTIONS (3)
  - Arrhythmia supraventricular [Not Recovered/Not Resolved]
  - Arrhythmia [Not Recovered/Not Resolved]
  - Ventricular arrhythmia [Not Recovered/Not Resolved]

NARRATIVE: CASE EVENT DATE: 20170522
